FAERS Safety Report 5913704-6 (Version None)
Quarter: 2008Q3

REPORT INFORMATION
  Report Type: 
  Country: None (occurrence: None)
  Receive Date: 20080909
  Receipt Date: 20070823
  Transmission Date: 20090109
  Serious: Yes (Death)
  Sender: FDA-Public Use
  Company Number: 163-20785-07081335

PATIENT
  Age: 73 Year
  Sex: Male

DRUGS (1)
  1. THALOMID [Suspect]
     Indication: LYMPHOMA
     Dosage: 50 MG, ORAL
     Route: 047
     Dates: start: 20070618

REACTIONS (1)
  - DEATH [None]
